FAERS Safety Report 6376004-9 (Version None)
Quarter: 2009Q3

REPORT INFORMATION
  Report Type: 
  Country: None (occurrence: None)
  Receive Date: 20090921
  Receipt Date: 20090908
  Transmission Date: 20100115
  Serious: Yes (Hospitalization, Other)
  Sender: FDA-Public Use
  Company Number: 2009-03688

PATIENT
  Age: 63 Year
  Sex: Male

DRUGS (3)
  1. VELCADE [Suspect]
     Indication: DRUG USE FOR UNKNOWN INDICATION
  2. CORTICOSTEROIDS() [Suspect]
     Indication: DRUG USE FOR UNKNOWN INDICATION
  3. ANTIDEPRESSANTS() [Suspect]
     Indication: DEPRESSION

REACTIONS (7)
  - CONSTIPATION [None]
  - DEPRESSION [None]
  - DIARRHOEA [None]
  - HEADACHE [None]
  - NEUROPATHY PERIPHERAL [None]
  - PERONEAL NERVE PALSY [None]
  - URINARY INCONTINENCE [None]
